FAERS Safety Report 6735657-3 (Version None)
Quarter: 2010Q2

REPORT INFORMATION
  Report Type: 
  Country: None (occurrence: None)
  Receive Date: 20100521
  Receipt Date: 20100511
  Transmission Date: 20101027
  Serious: Yes (Hospitalization)
  Sender: FDA-Public Use
  Company Number: PHHO2010LT07054

PATIENT
  Sex: Male
  Weight: 123 kg

DRUGS (1)
  1. ACZ885 ACZ+ [Suspect]
     Indication: GOUT
     Dosage: UNK
     Dates: start: 20100311

REACTIONS (1)
  - RETINAL ARTERY THROMBOSIS [None]
